FAERS Safety Report 5220829-X (Version None)
Quarter: 2007Q1

REPORT INFORMATION
  Report Type: 
  Country: None (occurrence: None)
  Receive Date: 20070123
  Receipt Date: 20070111
  Transmission Date: 20070707
  Serious: Yes (Hospitalization)
  Sender: FDA-Public Use
  Company Number: 151835ISR

PATIENT
  Age: 77 Year
  Sex: Female

DRUGS (2)
  1. METOCLOPRAMIDE [Suspect]
     Indication: NAUSEA
     Dosage: 30 MG (10 MG, 3 IN 1 D)
     Route: 048
     Dates: start: 20061024, end: 20061027
  2. BUPRENORPHINE HCL [Suspect]
     Indication: PAIN
     Dosage: 120 MCG (5 MCG, 1 IN 1 HR)
     Route: 062
     Dates: start: 20061024, end: 20061027

REACTIONS (2)
  - HYPERTONIA [None]
  - IMMOBILE [None]
